FAERS Safety Report 18448539 (Version 1)
Quarter: 2020Q4

REPORT INFORMATION
  Report Type: Spontaneous
  Country: GB (occurrence: GB)
  Receive Date: 20201031
  Receipt Date: 20201031
  Transmission Date: 20210114
  Serious: Yes (Other)
  Sender: FDA-Public Use
  Company Number: GB-TEVA-2020-GB-1842794

PATIENT
  Age: 23 Year
  Sex: Female
  Weight: 52.61 kg

DRUGS (2)
  1. FEMINAX ULTRA [Suspect]
     Active Substance: NAPROXEN
     Indication: DYSMENORRHOEA
     Dosage: 2X 500 AS PER BOX
     Route: 048
     Dates: start: 20120301, end: 20120303
  2. OVRANETTE [Concomitant]
     Active Substance: ETHINYL ESTRADIOL\LEVONORGESTREL

REACTIONS (3)
  - Drooling [Unknown]
  - Amnesia [Unknown]
  - Hypoaesthesia teeth [Not Recovered/Not Resolved]

NARRATIVE: CASE EVENT DATE: 201203
